FAERS Safety Report 23615979 (Version 1)
Quarter: 2024Q1

REPORT INFORMATION
  Report Type: Spontaneous
  Country: GB (occurrence: GB)
  Receive Date: 20240311
  Receipt Date: 20240311
  Transmission Date: 20240410
  Serious: Yes (Other)
  Sender: FDA-Public Use
  Company Number: GB-MHRA-ADR 28566855

PATIENT
  Age: 44 Year
  Sex: Female

DRUGS (1)
  1. METRONIDAZOLE [Suspect]
     Active Substance: METRONIDAZOLE
     Indication: Tooth infection
     Dosage: UNK, THREE DAY PRESCRIPTION
     Route: 065
     Dates: start: 20240226

REACTIONS (5)
  - Discomfort [Unknown]
  - Sluggishness [Unknown]
  - Fatigue [Unknown]
  - Lethargy [Unknown]
  - Brain fog [Unknown]
